FAERS Safety Report 9003101 (Version 4)
Quarter: 2014Q2

REPORT INFORMATION
  Report Type: Spontaneous
  Country: US (occurrence: US)
  Receive Date: 20130108
  Receipt Date: 20140422
  Transmission Date: 20141212
  Serious: Yes (Hospitalization, Disabling, Other)
  Sender: FDA-Public Use
  Company Number: US-009507513-1301USA000952

PATIENT
  Sex: Female
  Weight: 60.32 kg

DRUGS (22)
  1. FOSAMAX [Suspect]
     Indication: OSTEOPOROSIS
     Dosage: 70 MG, WEEKLY
     Route: 048
     Dates: start: 200209
  2. FOSAMAX PLUS D [Suspect]
     Indication: OSTEOPOROSIS
     Dosage: 70 MG/2800 IU
     Route: 048
     Dates: start: 200603, end: 200808
  3. ALENDRONATE SODIUM [Suspect]
     Indication: OSTEOPOROSIS
     Dosage: 70 MG, UNK
     Dates: start: 20090424, end: 201107
  4. FORTEO [Concomitant]
     Indication: OSTEOPOROSIS
  5. LIPITOR [Concomitant]
     Indication: BLOOD CHOLESTEROL INCREASED
     Dosage: 10 MG, DAILY
     Dates: start: 200004, end: 200909
  6. PRAVASTATIN SODIUM [Concomitant]
     Indication: BLOOD CHOLESTEROL INCREASED
     Dosage: UNK
     Dates: start: 200909, end: 201111
  7. CARDIZEM CD [Concomitant]
     Indication: HYPERTENSION
     Dosage: 240 MG, DAILY
     Dates: start: 200007
  8. CARTIA XT [Concomitant]
     Indication: HYPERTENSION
     Dosage: UNK
     Dates: start: 200703, end: 200803
  9. SELECTIVE ESTROGEN RECEPTOR MODULATOR (UNSPECIFIED) [Concomitant]
     Dosage: UNK
     Dates: start: 2001, end: 2002
  10. NEXIUM [Concomitant]
     Dosage: UNK
     Dates: start: 200202, end: 2003
  11. FENTANYL [Concomitant]
     Indication: PAIN
     Dosage: 100 MICROGRAM/HOUR PATCH QOD
     Route: 062
     Dates: start: 200701
  12. HYDROCODONE [Concomitant]
     Indication: PAIN
     Dosage: UNK
     Dates: start: 200306, end: 201010
  13. OXYCODONE [Concomitant]
     Indication: PAIN
     Dosage: UNK
     Dates: start: 200610
  14. HYDROMORPHONE [Concomitant]
     Indication: PAIN
     Dosage: UNK
     Dates: start: 200911, end: 200911
  15. GABAPENTIN [Concomitant]
     Indication: PAIN
     Dosage: UNK
     Dates: start: 201007, end: 201008
  16. LIDODERM [Concomitant]
     Indication: PAIN
     Dosage: UNK
     Dates: start: 201009, end: 201010
  17. MORPHINE SULFATE [Concomitant]
     Indication: PAIN
     Dosage: 30-60 MG BID
     Dates: start: 201102
  18. PERCOCET [Concomitant]
     Indication: PAIN
     Dosage: 7.5/325 2 TABS Q4-6 HOURS
     Dates: start: 200907, end: 201001
  19. DILAUDID [Concomitant]
     Indication: PAIN
     Dosage: UNK
     Dates: start: 200911, end: 200911
  20. ECOTRIN [Concomitant]
     Indication: PAIN
     Dosage: UNK
     Dates: start: 200202, end: 200906
  21. DURAGESIC [Concomitant]
     Indication: PAIN
     Dosage: UNK
     Dates: start: 200610, end: 201002
  22. NITROGLYCERIN [Concomitant]
     Indication: PAIN
     Dosage: UNK
     Dates: start: 200202, end: 200501

REACTIONS (72)
  - Femur fracture [Not Recovered/Not Resolved]
  - Open reduction of fracture [Unknown]
  - Femur fracture [Unknown]
  - Internal fixation of fracture [Unknown]
  - Medical device removal [Unknown]
  - Osteoporosis [Unknown]
  - Stress fracture [Unknown]
  - Low turnover osteopathy [Unknown]
  - Femur fracture [Unknown]
  - Knee arthroplasty [Unknown]
  - Hip arthroplasty [Unknown]
  - Osteoarthritis [Unknown]
  - Device failure [Unknown]
  - Hip arthroplasty [Unknown]
  - Open reduction of fracture [Unknown]
  - Device failure [Unknown]
  - Bone pain [Unknown]
  - Radius fracture [Unknown]
  - External fixation of fracture [Unknown]
  - Rib fracture [Unknown]
  - Arthritis [Unknown]
  - Herpes zoster [Unknown]
  - Inflammation [Unknown]
  - Nervous system disorder [Unknown]
  - Depression [Unknown]
  - Anxiety [Unknown]
  - Infection [Unknown]
  - Infection [Unknown]
  - Infection [Unknown]
  - Infection [Unknown]
  - Infection [Unknown]
  - Arthropathy [Unknown]
  - Incorrect dose administered [Unknown]
  - Device failure [Unknown]
  - Intervertebral disc degeneration [Unknown]
  - Device failure [Unknown]
  - Osteopenia [Unknown]
  - Osteoarthritis [Unknown]
  - Foreign body [Unknown]
  - Fracture delayed union [Unknown]
  - Osteomyelitis [Unknown]
  - Spondylolisthesis [Unknown]
  - Fall [Unknown]
  - Osteomyelitis [Unknown]
  - Bursitis [Unknown]
  - Hyperuricaemia [Unknown]
  - Arteriosclerosis [Unknown]
  - Polyarthritis [Unknown]
  - Fracture delayed union [Unknown]
  - Carotid bruit [Unknown]
  - Ecchymosis [Unknown]
  - Hypoaesthesia [Unknown]
  - Chondrocalcinosis [Unknown]
  - Osteopenia [Unknown]
  - Emotional distress [Unknown]
  - Radius fracture [Unknown]
  - Ulna fracture [Unknown]
  - Tendonitis [Unknown]
  - Tendon rupture [Unknown]
  - Skin abrasion [Unknown]
  - Knee arthroplasty [Unknown]
  - Gout [Unknown]
  - Arteriosclerosis coronary artery [Unknown]
  - Chondrocalcinosis pyrophosphate [Unknown]
  - Meniscus injury [Unknown]
  - Intervertebral disc disorder [Unknown]
  - Meniscus removal [Unknown]
  - Arthralgia [Not Recovered/Not Resolved]
  - Arthralgia [Not Recovered/Not Resolved]
  - Drug ineffective [Unknown]
  - Drug ineffective [Unknown]
  - Gastrooesophageal reflux disease [Unknown]
